FAERS Safety Report 4362483-5 (Version None)
Quarter: 2004Q2

REPORT INFORMATION
  Report Type: 
  Country: None (occurrence: None)
  Receive Date: 20040518
  Receipt Date: 20040428
  Transmission Date: 20050107
  Serious: Yes (Hospitalization)
  Sender: FDA-Public Use
  Company Number: 200410944GDS

PATIENT
  Age: 39 Year
  Sex: Male

DRUGS (5)
  1. ADALAT CC [Suspect]
     Indication: HYPERTENSION
     Dosage: 120 MG, TOTAL DAILY, ORAL
     Route: 048
     Dates: end: 20030417
  2. VIAGRA [Suspect]
     Indication: ERECTILE DYSFUNCTION
     Dosage: 80 MG, TOTAL DAILY, ORAL
     Route: 048
     Dates: end: 20030417
  3. TRIPAMIDE [Concomitant]
  4. NADOLOL [Concomitant]
  5. TRIAZOLAM [Concomitant]

REACTIONS (11)
  - BLOOD PRESSURE SYSTOLIC INCREASED [None]
  - BRAIN STEM INFARCTION [None]
  - COLD SWEAT [None]
  - DYSSTASIA [None]
  - EMBOLIC CEREBRAL INFARCTION [None]
  - GAMMA-GLUTAMYLTRANSFERASE INCREASED [None]
  - HAEMATOCRIT INCREASED [None]
  - HAEMOGLOBIN INCREASED [None]
  - HEAD DISCOMFORT [None]
  - HYPERTENSIVE CARDIOMEGALY [None]
  - TRANSIENT ISCHAEMIC ATTACK [None]
